FAERS Safety Report 18190260 (Version 4)
Quarter: 2020Q4

REPORT INFORMATION
  Report Type: Spontaneous
  Country: JP (occurrence: JP)
  Receive Date: 20200825
  Receipt Date: 20201110
  Transmission Date: 20210113
  Serious: Yes (Hospitalization, Other)
  Sender: FDA-Public Use
  Company Number: JP-AMGEN-JPNSP2020134018

PATIENT
  Age: 40 Year
  Sex: Male
  Weight: 98 kg

DRUGS (6)
  1. BLINCYTO [Suspect]
     Active Substance: BLINATUMOMAB
     Dosage: 28 MICROGRAM, QD
     Route: 041
     Dates: start: 20200918
  2. BLINCYTO [Suspect]
     Active Substance: BLINATUMOMAB
     Dosage: 28 MICROGRAM, QD
     Route: 041
     Dates: start: 20200716, end: 20200805
  3. CYLOCIDE [Concomitant]
     Active Substance: CYTARABINE
     Dosage: 40 MILLIGRAM
     Dates: start: 20200806
  4. PREDONINE [PREDNISOLONE ACETATE] [Concomitant]
     Active Substance: PREDNISOLONE ACETATE
     Dosage: 10 MILLIGRAM
     Dates: start: 20200806
  5. BLINCYTO [Suspect]
     Active Substance: BLINATUMOMAB
     Indication: B PRECURSOR TYPE ACUTE LEUKAEMIA
     Dosage: 9 MICROGRAM, QD
     Route: 041
     Dates: start: 20200709, end: 20200715
  6. CYLOCIDE [Concomitant]
     Active Substance: CYTARABINE
     Dosage: 5700 MILLIGRAM
     Dates: start: 20200817

REACTIONS (1)
  - Central nervous system leukaemia [Recovering/Resolving]

NARRATIVE: CASE EVENT DATE: 20200806
